FAERS Safety Report 11449060 (Version 29)
Quarter: 2022Q3

REPORT INFORMATION
  Report Type: Other
  Country: GB (occurrence: GB)
  Receive Date: 20150902
  Receipt Date: 20220713
  Transmission Date: 20221027
  Serious: Yes (Hospitalization)
  Sender: FDA-Public Use
  Company Number: GB-ROCHE-1588876

PATIENT
  Age: 43 Year
  Sex: Female
  Weight: 80.6 kg

DRUGS (33)
  1. TRASTUZUMAB [Suspect]
     Active Substance: TRASTUZUMAB
     Indication: Breast cancer metastatic
     Route: 058
     Dates: start: 20150226, end: 20150508
  2. ADO-TRASTUZUMAB EMTANSINE [Suspect]
     Active Substance: ADO-TRASTUZUMAB EMTANSINE
     Indication: Breast cancer metastatic
     Dosage: ON 06/AUG/2015, SHE RECEIVED MOST RECENT DOSE OF TRASTUZUMAB EMTANSINE.
     Route: 042
     Dates: start: 20150604
  3. PACLITAXEL [Suspect]
     Active Substance: PACLITAXEL
     Indication: Breast cancer metastatic
     Dosage: MOST RECENT DOSE RECEIVED ON 22/05/2015
     Route: 042
     Dates: start: 20150226
  4. PERTUZUMAB [Suspect]
     Active Substance: PERTUZUMAB
     Indication: Breast cancer metastatic
     Route: 042
     Dates: start: 20150226
  5. PERTUZUMAB [Suspect]
     Active Substance: PERTUZUMAB
     Dosage: ON 08/MAY/2015, SHE RECEIVED MOST RECENT DOSE OF PERTUZUMAB.
     Route: 042
  6. ZOPICLONE [Concomitant]
     Active Substance: ZOPICLONE
     Route: 048
     Dates: start: 201502
  7. TRAMADOL [Concomitant]
     Active Substance: TRAMADOL
     Route: 048
     Dates: start: 201502
  8. ALBUTEROL [Concomitant]
     Active Substance: ALBUTEROL
     Indication: Malaise
     Dosage: NEBULIZED
     Dates: start: 201504
  9. ALBUTEROL [Concomitant]
     Active Substance: ALBUTEROL
     Dosage: INHALATION
     Dates: start: 20150602
  10. DALTEPARIN [Concomitant]
     Active Substance: DALTEPARIN
     Dosage: 15000 UNIT
     Route: 058
     Dates: start: 201504
  11. LACTULOSE [Concomitant]
     Active Substance: LACTULOSE
     Route: 048
     Dates: start: 20150127, end: 20150801
  12. BISOPROLOL [Concomitant]
     Active Substance: BISOPROLOL
     Dates: start: 201504, end: 20150810
  13. BISOPROLOL [Concomitant]
     Active Substance: BISOPROLOL
     Route: 048
     Dates: start: 20150811, end: 20150812
  14. BISOPROLOL [Concomitant]
     Active Substance: BISOPROLOL
     Route: 048
     Dates: start: 20150815
  15. ACETAMINOPHEN [Concomitant]
     Active Substance: ACETAMINOPHEN
     Indication: Headache
     Route: 048
     Dates: start: 201502
  16. ACETAMINOPHEN [Concomitant]
     Active Substance: ACETAMINOPHEN
     Route: 048
     Dates: start: 20150823, end: 20150825
  17. LORAZEPAM [Concomitant]
     Active Substance: LORAZEPAM
     Route: 048
     Dates: start: 201502
  18. MORPHINE SULFATE [Concomitant]
     Active Substance: MORPHINE SULFATE
     Route: 048
     Dates: start: 201502
  19. DEXAMETHASONE [Concomitant]
     Active Substance: DEXAMETHASONE
     Indication: Confusional state
     Route: 048
     Dates: start: 201502, end: 20150823
  20. DEXAMETHASONE [Concomitant]
     Active Substance: DEXAMETHASONE
     Route: 042
     Dates: start: 20150823, end: 20150823
  21. DOXYCYCLINE [Concomitant]
     Active Substance: DOXYCYCLINE
     Indication: Malaise
     Dates: start: 201505
  22. DOXYCYCLINE [Concomitant]
     Active Substance: DOXYCYCLINE
     Route: 048
     Dates: start: 20150603, end: 20150608
  23. METOCLOPRAMIDE [Concomitant]
     Active Substance: METOCLOPRAMIDE
     Route: 048
     Dates: start: 20150226, end: 201508
  24. SENNA [Concomitant]
     Active Substance: SENNA LEAF\SENNOSIDES\SENNOSIDES A AND B
     Route: 048
     Dates: start: 201504
  25. CHLORPHENIRAMINE MALEATE [Concomitant]
     Active Substance: CHLORPHENIRAMINE MALEATE
     Dosage: ONCE
     Route: 042
     Dates: start: 20150226, end: 20150806
  26. HYDROCORTISONE [Concomitant]
     Active Substance: HYDROCORTISONE
     Dosage: ONCE
     Route: 042
     Dates: start: 20150226, end: 20150806
  27. ONDANSETRON [Concomitant]
     Active Substance: ONDANSETRON
     Dates: start: 201502
  28. ONDANSETRON [Concomitant]
     Active Substance: ONDANSETRON
     Route: 048
     Dates: start: 20150226, end: 20150424
  29. GRANISETRON [Concomitant]
     Active Substance: GRANISETRON
     Dosage: ONCE
     Dates: start: 20150226, end: 20150806
  30. OXYGEN [Concomitant]
     Active Substance: OXYGEN
     Dosage: 8 L, UNK (INHALANT)
     Route: 055
     Dates: start: 20150410
  31. OXYGEN [Concomitant]
     Active Substance: OXYGEN
     Dosage: INHALANT
     Route: 065
     Dates: start: 201502
  32. ADENOSINE [Concomitant]
     Active Substance: ADENOSINE
     Route: 042
     Dates: start: 20150808, end: 20150808
  33. HYALURONIDASE (HUMAN RECOMBINANT) [Concomitant]
     Active Substance: HYALURONIDASE (HUMAN RECOMBINANT)
     Dosage: ON 08/MAY/2015, MOST RECENT DOSE
     Route: 058
     Dates: start: 20150226

REACTIONS (18)
  - Confusional state [Not Recovered/Not Resolved]
  - Incontinence [Not Recovered/Not Resolved]
  - Dizziness [Not Recovered/Not Resolved]
  - Nausea [Recovered/Resolved]
  - Sepsis [Recovered/Resolved with Sequelae]
  - Headache [Not Recovered/Not Resolved]
  - Lower respiratory tract infection [Recovered/Resolved with Sequelae]
  - Supraventricular tachycardia [Recovered/Resolved with Sequelae]
  - Dry mouth [Not Recovered/Not Resolved]
  - Nausea [Recovered/Resolved]
  - Dyspepsia [Not Recovered/Not Resolved]
  - Tachycardia [Recovered/Resolved with Sequelae]
  - Pneumonia [Not Recovered/Not Resolved]
  - Malaise [Not Recovered/Not Resolved]
  - Vomiting [Unknown]
  - Rash [Not Recovered/Not Resolved]
  - Dyspnoea [Not Recovered/Not Resolved]
  - Depressed mood [Not Recovered/Not Resolved]

NARRATIVE: CASE EVENT DATE: 20150502
